FAERS Safety Report 4931313-2 (Version None)
Quarter: 2006Q1

REPORT INFORMATION
  Report Type: 
  Country: None (occurrence: None)
  Receive Date: 20060227
  Receipt Date: 20060213
  Transmission Date: 20060701
  Serious: Yes (Other)
  Sender: FDA-Public Use
  Company Number: 06-000135

PATIENT
  Age: 32 Year
  Sex: Male

DRUGS (2)
  1. TACLONEX (CALCIPOTRIENE, BETAMETHASONE DIPROPIONATE) OINTMENT, .005/0. [Suspect]
     Indication: PSORIASIS
     Dosage: QD, TOPICAL
     Route: 061
     Dates: start: 20050628, end: 20050705
  2. ZYRTEC [Concomitant]

REACTIONS (1)
  - GUTTATE PSORIASIS [None]
